FAERS Safety Report 12678182 (Version 3)
Quarter: 2017Q2

REPORT INFORMATION
  Report Type: Spontaneous
  Country: GB (occurrence: GB)
  Receive Date: 20160823
  Receipt Date: 20170406
  Transmission Date: 20170830
  Serious: Yes (Death, Hospitalization, Other)
  Sender: FDA-Public Use
  Company Number: GB-PFIZER INC-1600183

PATIENT
  Age: 9 Month
  Sex: Female
  Weight: 8.5 kg

DRUGS (8)
  1. PHENYTOIN. [Suspect]
     Active Substance: PHENYTOIN
     Indication: STATUS EPILEPTICUS
     Dosage: 180 MG, OVER 20 MINUTES
     Route: 042
     Dates: start: 20121127, end: 20121127
  2. DIAZEPAM. [Concomitant]
     Active Substance: DIAZEPAM
     Indication: SEIZURE
     Dosage: UNK
     Route: 054
     Dates: start: 20121127, end: 20121127
  3. PARACETAMOL [Concomitant]
     Active Substance: ACETAMINOPHEN
     Dosage: UNK
     Route: 065
  4. PHENYTOIN. [Suspect]
     Active Substance: PHENYTOIN
     Indication: SEIZURE
  5. KEPPRA [Suspect]
     Active Substance: LEVETIRACETAM
     Indication: EPILEPSY
     Dosage: 120 MG, 2X/DAY
     Route: 048
     Dates: start: 20120709, end: 20121127
  6. BUCCOLAM [Suspect]
     Active Substance: MIDAZOLAM HYDROCHLORIDE
     Indication: SEIZURE
     Dosage: 2.5 MG, AT 5 MINUTES AND 15 MINUTES
     Route: 002
     Dates: start: 20121127, end: 20121127
  7. ERYTHROMYCIN. [Suspect]
     Active Substance: ERYTHROMYCIN
     Indication: VIRAL UPPER RESPIRATORY TRACT INFECTION
     Dosage: ONE DOSE
     Dates: start: 20121126
  8. EPILIM [Suspect]
     Active Substance: VALPROATE SODIUM
     Indication: SEIZURE
     Dosage: 140 MG, 2X/DAY
     Route: 048
     Dates: start: 20120718, end: 20121127

REACTIONS (8)
  - Drug ineffective [Fatal]
  - Prescribed overdose [Unknown]
  - Respiratory acidosis [Fatal]
  - Tachycardia [Not Recovered/Not Resolved]
  - Pulseless electrical activity [Unknown]
  - Cardiac arrest neonatal [Fatal]
  - Cardiac arrest [Fatal]
  - Hypoventilation [Not Recovered/Not Resolved]

NARRATIVE: CASE EVENT DATE: 201211
